FAERS Safety Report 10732432 (Version 2)
Quarter: 2015Q1

REPORT INFORMATION
  Report Type: Spontaneous
  Country: US (occurrence: US)
  Receive Date: 20150123
  Receipt Date: 20150220
  Transmission Date: 20150721
  Serious: Yes (Hospitalization)
  Sender: FDA-Public Use
  Company Number: US-PFIZER INC-2015014927

PATIENT
  Age: 57 Year
  Sex: Female

DRUGS (1)
  1. PREMARIN [Suspect]
     Active Substance: ESTROGENS, CONJUGATED
     Indication: VULVOVAGINAL DRYNESS
     Dosage: 0.625 MG, 1X/DAY (ONCE AT NIGHT)
     Dates: start: 20150102, end: 20150103

REACTIONS (6)
  - Asthenia [Unknown]
  - Vulvovaginal burning sensation [Recovered/Resolved]
  - Malaise [Unknown]
  - Heart rate increased [Recovered/Resolved]
  - Swollen tongue [Unknown]
  - Mouth swelling [Recovered/Resolved]

NARRATIVE: CASE EVENT DATE: 20150102
